FAERS Safety Report 8993113 (Version 1)
Quarter: 2013Q1

REPORT INFORMATION
  Report Type: Spontaneous
  Country: ES (occurrence: ES)
  Receive Date: 20130102
  Receipt Date: 20130102
  Transmission Date: 20140127
  Serious: Yes (Other)
  Sender: FDA-Public Use
  Company Number: ES-ROCHE-1173758

PATIENT
  Age: 81 Year
  Sex: Male

DRUGS (2)
  1. RANIBIZUMAB [Suspect]
     Indication: AGE-RELATED MACULAR DEGENERATION
     Route: 050
  2. DOXAZOSIN [Concomitant]

REACTIONS (12)
  - Dyspnoea [Unknown]
  - Palpitations [Unknown]
  - Oedema peripheral [Unknown]
  - Cardiac failure congestive [Unknown]
  - Cardiac disorder [Unknown]
  - Bronchitis chronic [Unknown]
  - Hypoaesthesia [Unknown]
  - Cerebrovascular accident [Unknown]
  - Embolic stroke [Unknown]
  - Hemiplegia [Unknown]
  - Aphasia [Unknown]
  - Hemianopia homonymous [Unknown]
